FAERS Safety Report 5069991-2 (Version None)
Quarter: 2006Q3

REPORT INFORMATION
  Report Type: 
  Country: None (occurrence: None)
  Receive Date: 20060714
  Receipt Date: 20060429
  Transmission Date: 20061208
  Serious: No
  Sender: FDA-Public Use
  Company Number: 2006SP001884

PATIENT
  Age: 46 Year
  Sex: Female
  Weight: 90.7194 kg

DRUGS (4)
  1. LUNESTA [Suspect]
     Indication: INSOMNIA
     Dosage: 3 MG; 1X; ORAL
     Route: 048
     Dates: start: 20060401, end: 20060401
  2. METOPROLOL TARTRATE [Concomitant]
  3. COZAAR [Concomitant]
  4. SYNTHROID [Concomitant]

REACTIONS (1)
  - DYSGEUSIA [None]
